FAERS Safety Report 5657920-X (Version None)
Quarter: 2008Q1

REPORT INFORMATION
  Report Type: 
  Country: None (occurrence: None)
  Receive Date: 20080310
  Receipt Date: 20080303
  Transmission Date: 20080703
  Serious: Yes (Hospitalization)
  Sender: FDA-Public Use
  Company Number: PHRM2008FR00963

PATIENT
  Age: 42 Year
  Sex: Female

DRUGS (3)
  1. SYNTOCINON [Suspect]
     Dosage: 5 IU, ONCE/SINGLE
     Route: 042
     Dates: start: 20080224, end: 20080224
  2. SYNTOCINON [Suspect]
     Dosage: 20 IU, ONCE/SINGLE
     Dates: start: 20080224, end: 20080224
  3. PROPESS [Concomitant]
     Indication: INDUCED LABOUR
     Route: 067
     Dates: start: 20080224, end: 20080224

REACTIONS (4)
  - DRUG INEFFECTIVE [None]
  - POSTPARTUM HAEMORRHAGE [None]
  - TRANSFUSION [None]
  - UTERINE ATONY [None]
